FAERS Safety Report 4801376-3 (Version None)
Quarter: 2005Q4

REPORT INFORMATION
  Report Type: 
  Country: None (occurrence: None)
  Receive Date: 20051017
  Receipt Date: 20051006
  Transmission Date: 20060501
  Serious: Yes (Hospitalization)
  Sender: FDA-Public Use
  Company Number: US-ABBOTT-05P-163-0312987-00

PATIENT
  Sex: Male
  Weight: 48.578 kg

DRUGS (15)
  1. RITONAVIR SOFT GELATIN CAPSULES [Suspect]
     Indication: HIV INFECTION
     Route: 048
     Dates: start: 20050829, end: 20050908
  2. TMC114 [Concomitant]
     Indication: HIV INFECTION
     Route: 048
     Dates: start: 20050829, end: 20050908
  3. ZIDOVUDINE W/LAMIVUDINE [Concomitant]
     Indication: DRUG USE FOR UNKNOWN INDICATION
     Route: 048
     Dates: start: 19910201, end: 20050908
  4. TRUVADA [Concomitant]
     Indication: HIV INFECTION
     Route: 048
     Dates: start: 20050828
  5. ATENOLOL [Concomitant]
     Indication: HYPERTENSION
     Route: 048
  6. LISINOPRIL [Concomitant]
     Indication: HYPERTENSION
     Route: 048
  7. OXYCOCET [Concomitant]
     Indication: PAIN
     Route: 048
  8. EFAVIRENZ [Concomitant]
     Indication: HIV INFECTION
     Route: 048
     Dates: start: 19910201, end: 20050908
  9. DAPSONE [Concomitant]
     Indication: INFECTION PROPHYLAXIS
     Route: 048
  10. MULTI-VITAMINS [Concomitant]
     Indication: NUTRITIONAL SUPPORT
     Route: 048
  11. FLUOCINONIDE [Concomitant]
     Indication: ACNE
     Route: 061
  12. NAPROXEN [Concomitant]
     Indication: ARTHRALGIA
     Route: 048
  13. TERAZOSIN HCL [Concomitant]
     Indication: BENIGN PROSTATIC HYPERPLASIA
     Route: 048
  14. ASPIRIN [Concomitant]
     Indication: CHEST PAIN
     Route: 048
  15. UREA [Concomitant]
     Indication: DRY SKIN
     Route: 061

REACTIONS (5)
  - BACK PAIN [None]
  - CONDITION AGGRAVATED [None]
  - DEPRESSION [None]
  - DIARRHOEA [None]
  - HOMELESS [None]
